FAERS Safety Report 14685442 (Version 1)
Quarter: 2018Q1

REPORT INFORMATION
  Report Type: Spontaneous
  Country: RU (occurrence: RU)
  Receive Date: 20180327
  Receipt Date: 20180327
  Transmission Date: 20180509
  Serious: Yes (Hospitalization)
  Sender: FDA-Public Use
  Company Number: RU-ASTRAZENECA-2018SE36505

PATIENT
  Age: 51 Year
  Sex: Female
  Weight: 90 kg

DRUGS (3)
  1. FORXIGA [Suspect]
     Active Substance: DAPAGLIFLOZIN
     Indication: TYPE 2 DIABETES MELLITUS
     Route: 048
  2. DIABETON [Concomitant]
     Active Substance: GLICLAZIDE
  3. GLUCOPHAGE LONG [Concomitant]

REACTIONS (1)
  - Neuritis [Recovering/Resolving]
